FAERS Safety Report 9424843 (Version 3)
Quarter: 2014Q1

REPORT INFORMATION
  Report Type: Spontaneous
  Country: US (occurrence: US)
  Receive Date: 20130729
  Receipt Date: 20140306
  Transmission Date: 20141002
  Serious: No
  Sender: FDA-Public Use
  Company Number: US-PFIZER INC-2013217104

PATIENT
  Age: 66 Year
  Sex: Female

DRUGS (39)
  1. LYRICA [Suspect]
     Indication: DIABETIC NEUROPATHY
     Dosage: 150 MG, 2X/DAY
     Route: 048
     Dates: start: 20120123
  2. LYRICA [Suspect]
     Dosage: 75 MG, 2X/DAY
     Route: 048
  3. LYRICA [Suspect]
     Dosage: 150 MG, 2X/DAY
     Route: 048
     Dates: start: 20130628
  4. FLUTICASONE PROPIONATE [Concomitant]
     Dosage: 50 MCG/ACT,  2 SPRAYS IN EACH NOSTRILS ONCE DAILY
     Route: 045
     Dates: start: 20100405
  5. SYMBICORT [Concomitant]
     Dosage: 160-4.5 MCG/ACT, INHALE 2 PUFFS TWICE DAILY
     Dates: start: 20060926
  6. SYMBICORT [Concomitant]
     Dosage: 160-4.5 MCG/ACT, INHALE 2 PUFFS TWICE DAILY
     Dates: start: 20080926
  7. VENTOLIN [Concomitant]
     Dosage: (90 BASE) MCG/ACT, INHALE 1 TO 2 PUFFS EVERY - 6 HOURS AS NEEDED
     Dates: start: 20100405
  8. HYDROCODONE-ACETAMINOPHEN [Concomitant]
     Indication: PAIN
     Dosage: HYDROCODONE (5MG)-ACETAMINOPHEN (500 MG), 1 TO 2 TABLETS EVERY 6 HOURS AS NEEDED
     Route: 048
     Dates: start: 20091217
  9. HYDROCODONE-ACETAMINOPHEN [Concomitant]
     Dosage: 5-325 MG
     Dates: start: 20091217
  10. AMANTADINE HYDROCHLORIDE [Concomitant]
     Dosage: 100 MG, 2X/DAY, AS NEEDED
     Route: 048
     Dates: start: 20091016
  11. GLIPIZIDE [Concomitant]
     Dosage: 10 MG, 2X/DAY
     Route: 048
     Dates: start: 20110909
  12. POTASSIUM [Concomitant]
     Dosage: 140 MEQ, DAILY
     Dates: start: 20110414
  13. CAPTOPRIL [Concomitant]
     Indication: DIABETIC NEPHROPATHY
     Dosage: 50 MG, 2X/DAY
     Route: 048
     Dates: start: 20090817
  14. ACYCLOVIR [Concomitant]
     Dosage: 800 MG; TAKE 1 TABLET 5 TIMES DAILY
     Route: 048
     Dates: start: 20090624
  15. ALBUTEROL SULFATE [Concomitant]
     Dosage: (2.5 MG/3ML)0.083 % INHALATION NEBULIZATION SOLUTION INHALE THE CONTENTS OF ONE VIAL VIA SYN MACHINE
     Dates: start: 20080907
  16. ALLOPURINOL [Concomitant]
     Dosage: 100 MG, DAILY ( TAKE 1 TABLET DAILY AS DIRECTED)
     Route: 048
     Dates: start: 20110210
  17. ANTIPYRINE W/BENZOCAINE [Concomitant]
     Indication: EAR PAIN
     Dosage: 54-14 MG/ML, OTIC SOLUTION PLACE 2-3 DROPS IN THE AFFECTED EAR(S) EVERY 2-3 HOURS AS NEEDED
     Dates: start: 20100107
  18. BUDESONIDE [Concomitant]
     Dosage: UNK (0.5 MG/2ML INHALATION SUSPENSION USE 1 UNIT DOSE VIA NEBULIZER 2 TIMES A DAY PRN)
     Dates: start: 20100425
  19. CALCIUM [Concomitant]
     Dosage: 600 MG, 2X/DAY; TAKE ONE TWICE DAILY
     Route: 048
     Dates: start: 20130312
  20. CINNAMON [Concomitant]
     Dosage: 500 MG, 2X/DAY ( TAKE 1 CAPSULE TWICE DAILY)
     Route: 048
     Dates: start: 20120124
  21. DIPHENHYDRAMINE HCL [Concomitant]
     Dosage: 50 MG, 1X/DAY; TAKE ONE @ BEDTIME
     Dates: start: 20140128
  22. FLAXSEED OIL [Concomitant]
     Dosage: 1000 MG, 2X/DAY
     Route: 048
     Dates: start: 20130711
  23. FLUCONAZOLE [Concomitant]
     Dosage: 200 MG, DAILY ( TAKE 1 TABLET DAILY AS DIRECTED)
     Route: 048
     Dates: start: 20091019
  24. FUROSEMIDE [Concomitant]
     Dosage: 40 MG, TAKE 2-3 TABLETS DAILY
     Route: 048
     Dates: start: 20091016
  25. IPRATROPIUM BROMIDE [Concomitant]
     Dosage: 0.02 % INHALATION SOLUTION USE 1 UNIT DOSE IN NEBULIZER EVERY 4 HOURS. MIX WITH 1 UNIT DOSE ALBUTERO
     Dates: start: 20080820
  26. KENALOG [Concomitant]
     Dosage: 40 MG/ML INJECTION SUSPENSION. 1ML KENALOG PLUS 6 ML OF BUPIVICAINE
     Dates: start: 20140207
  27. LACTULOSE [Concomitant]
     Indication: CONSTIPATION
     Dosage: 10 GM/15 ML; TAKE 1-2 TABLESPOONFUL BY MOUTH DAILY AS NEEDED
     Route: 048
     Dates: start: 20100218
  28. MAGNESIUM OXIDE [Concomitant]
     Dosage: 250 MG, 3X/DAY
     Route: 048
     Dates: start: 20130711
  29. METOLAZONE [Concomitant]
     Dosage: 5 MG, 1X/DAY
     Route: 048
     Dates: start: 20100824
  30. MULTI-B [Concomitant]
     Dosage: 1 DF, DAILY
     Route: 048
     Dates: start: 20120522
  31. PANTOPRAZOLE SODIUM [Concomitant]
     Dosage: 40 MG, DAILY; TAKE 1 TABLET 30 MINUTES BEFORE BREAKFAST DAILY
     Route: 048
     Dates: start: 20111228
  32. PREDNISONE [Concomitant]
     Dosage: 40 MG, DAILY
     Route: 048
     Dates: start: 20120314
  33. PULMICORT [Concomitant]
     Dosage: 0.5 MG/2 ML INHALATION SUSPENSION USE 1 UNIT DOSE VIA NEBULIZER 2 TIMES A DAY PRN ONLY
     Dates: start: 20100503
  34. RANITIDINE HYDROCHLORIDE [Concomitant]
     Dosage: 150 MG, 2X/DAY
     Route: 048
     Dates: start: 20130306
  35. MULTIVITE PLUS [Concomitant]
     Dosage: 1 DF, DAILY
     Route: 048
     Dates: start: 20121115
  36. TRAMADOL HYDROCHLORIDE [Concomitant]
     Dosage: 100 MG, 4X/DAY
     Route: 048
     Dates: start: 20081002
  37. VITAMIN C [Concomitant]
     Dosage: 1000 MG, 2X/DAY
     Route: 048
     Dates: start: 20121115
  38. VITAMIN D [Concomitant]
     Dosage: 400 IU, DAILY
     Route: 048
     Dates: start: 20130312
  39. VITAMIN E [Concomitant]
     Dosage: 400 IU, DAILY
     Dates: start: 20121115

REACTIONS (3)
  - Blood glucose decreased [Unknown]
  - Therapeutic response unexpected [Unknown]
  - Musculoskeletal disorder [Unknown]
